FAERS Safety Report 8803049 (Version 1)
Quarter: 2012Q4

REPORT INFORMATION
  Report Type: 
  Country: CN (occurrence: CN)
  Receive Date: 20120924
  Receipt Date: 20120924
  Transmission Date: 20130627
  Serious: Yes (Other)
  Sender: FDA-Public Use
  Company Number: CN-EISAI INC-E3810-05909-SPO-CN

PATIENT
  Age: 76 Year
  Sex: Female
  Weight: 55 kg

DRUGS (2)
  1. PARIET [Suspect]
     Indication: CHRONIC GASTRITIS
     Route: 048
     Dates: start: 20101023, end: 20101107
  2. AMOXICILLIN [Concomitant]
     Indication: CHRONIC GASTRITIS
     Route: 048
     Dates: start: 20101023

REACTIONS (1)
  - Purpura [Recovering/Resolving]
